FAERS Safety Report 5874856-X (Version None)
Quarter: 2008Q3

REPORT INFORMATION
  Report Type: 
  Country: None (occurrence: None)
  Receive Date: 20080908
  Receipt Date: 20080908
  Transmission Date: 20090109
  Serious: Yes (Other)
  Sender: FDA-Public Use
  Company Number: None

PATIENT
  Age: 51 Year
  Sex: Female
  Weight: 87.9978 kg

DRUGS (1)
  1. COREG [Suspect]
     Indication: HYPERTENSION
     Dosage: 3.125 MG TWICE DAILY PO
     Route: 048
     Dates: start: 20080418, end: 20080710

REACTIONS (3)
  - ANGINA PECTORIS [None]
  - COLD SWEAT [None]
  - JOINT SWELLING [None]
